FAERS Safety Report 8384081-9 (Version None)
Quarter: 2012Q2

REPORT INFORMATION
  Report Type: 
  Country: None (occurrence: None)
  Receive Date: 20120524
  Receipt Date: 20120517
  Transmission Date: 20120825
  Serious: Yes (Hospitalization)
  Sender: FDA-Public Use
  Company Number: VE-ROCHE-1071329

PATIENT
  Sex: Female

DRUGS (2)
  1. XOLAIR [Suspect]
     Indication: ASTHMA
     Route: 058
     Dates: start: 20120111
  2. XOLAIR [Suspect]
     Route: 058
     Dates: start: 20120412

REACTIONS (2)
  - HYPERSENSITIVITY [None]
  - LUNG DISORDER [None]
